FAERS Safety Report 18617855 (Version 1)
Quarter: 2020Q4

REPORT INFORMATION
  Report Type: Spontaneous
  Country: SE (occurrence: SE)
  Receive Date: 20201215
  Receipt Date: 20201215
  Transmission Date: 20210114
  Serious: Yes (Hospitalization)
  Sender: FDA-Public Use
  Company Number: SE-ACCORD-210715

PATIENT
  Age: 77 Year
  Sex: Male

DRUGS (15)
  1. LASIX [Concomitant]
     Active Substance: FUROSEMIDE
  2. GLYTRIN [Concomitant]
     Dosage: IF NECESSARY
  3. LEVETIRACETAM. [Suspect]
     Active Substance: LEVETIRACETAM
     Indication: PARTIAL SEIZURES
     Dosage: 2020-10-14 - DATE OF DOSE INCREASE
     Route: 048
     Dates: start: 20201014, end: 202011
  4. ALVEDON [Concomitant]
     Active Substance: ACETAMINOPHEN
     Dosage: IF NECESSARY
  5. ELIQUIS [Concomitant]
     Active Substance: APIXABAN
  6. CRESTOR [Concomitant]
     Active Substance: ROSUVASTATIN CALCIUM
  7. OMEPRAZOLE. [Concomitant]
     Active Substance: OMEPRAZOLE
  8. VALPROATE [Concomitant]
     Active Substance: VALPROIC ACID
  9. STESOLID [Concomitant]
     Active Substance: DIAZEPAM
  10. FURIX [Concomitant]
     Dosage: IF NECESSARY
  11. ATENOLOL/ATENOLOL HYDROCHLORIDE [Concomitant]
     Active Substance: ATENOLOL HYDROCHLORIDE
  12. IMDUR [Concomitant]
     Active Substance: ISOSORBIDE MONONITRATE
  13. LACTULOSE. [Concomitant]
     Active Substance: LACTULOSE
  14. ENALAPRIL [Concomitant]
     Active Substance: ENALAPRIL
  15. IMOVANE [Concomitant]
     Active Substance: ZOPICLONE
     Dosage: IF NECESSARY

REACTIONS (1)
  - Cognitive disorder [Unknown]

NARRATIVE: CASE EVENT DATE: 20201014
